FAERS Safety Report 10249982 (Version 1)
Quarter: 2014Q2

REPORT INFORMATION
  Report Type: Report from Study
  Country: US (occurrence: None)
  Receive Date: 20140618
  Receipt Date: 20140618
  Transmission Date: 20141212
  Serious: Yes (Hospitalization)
  Sender: FDA-Public Use
  Company Number: 153280

PATIENT
  Age: 72 Year
  Sex: Female
  Weight: 102 kg

DRUGS (6)
  1. CYTARABINE [Suspect]
     Indication: ACUTE MYELOID LEUKAEMIA
     Dates: start: 20131128
  2. DAUNORUBICIN [Concomitant]
  3. CALCIUM WITH VIT D [Concomitant]
  4. IBUPROFEN [Concomitant]
  5. LORATADINE [Concomitant]
  6. ASPIRIN [Concomitant]

REACTIONS (1)
  - Hypocalcaemia [None]
